FAERS Safety Report 10751853 (Version 3)
Quarter: 2015Q2

REPORT INFORMATION
  Report Type: Spontaneous
  Country: US (occurrence: US)
  Receive Date: 20150130
  Receipt Date: 20150402
  Transmission Date: 20150821
  Serious: Yes (Death)
  Sender: FDA-Public Use
  Company Number: US-PFIZER INC-2015038632

PATIENT
  Sex: Male

DRUGS (1)
  1. SUTENT [Suspect]
     Active Substance: SUNITINIB MALATE
     Indication: METASTATIC RENAL CELL CARCINOMA
     Dosage: UNK
     Dates: start: 201401, end: 20140926

REACTIONS (5)
  - Abdominal pain [Unknown]
  - Metastatic renal cell carcinoma [Fatal]
  - Nausea [Unknown]
  - Disease progression [Fatal]
  - Vomiting [Unknown]

NARRATIVE: CASE EVENT DATE: 2014
